FAERS Safety Report 8770900 (Version 1)
Quarter: 2012Q4

REPORT INFORMATION
  Report Type: 
  Country: US (occurrence: US)
  Receive Date: 20120906
  Receipt Date: 20120906
  Transmission Date: 20130627
  Serious: No
  Sender: FDA-Public Use
  Company Number: US-B.I. PHARMACEUTICALS,INC./RIDGEFIELD-2012-BP-21248BP

PATIENT
  Age: 70 Year
  Sex: Female

DRUGS (9)
  1. PRADAXA [Suspect]
     Indication: ATRIAL FIBRILLATION
     Dosage: 300 mg
     Route: 048
     Dates: start: 20110716
  2. CARVEDILOL [Concomitant]
     Indication: HYPERTENSION
     Dosage: 37.5 mg
     Route: 048
  3. CARDIZEM [Concomitant]
     Indication: HYPERTENSION
  4. TRANXENE [Concomitant]
     Indication: ANXIETY
     Dosage: 22.5 mg
     Route: 048
  5. TYLENOL [Concomitant]
     Indication: BACK PAIN
  6. HYDROCODONE [Concomitant]
     Indication: BACK PAIN
  7. LASIX [Concomitant]
     Indication: OEDEMA
  8. ALBUTEROL [Concomitant]
     Indication: ASTHMA
  9. QVAR [Concomitant]
     Indication: ASTHMA

REACTIONS (1)
  - Dizziness [Not Recovered/Not Resolved]
